FAERS Safety Report 4646906-X (Version None)
Quarter: 2005Q2

REPORT INFORMATION
  Report Type: 
  Country: None (occurrence: None)
  Receive Date: 20050427
  Receipt Date: 20041005
  Transmission Date: 20051028
  Serious: Yes (Hospitalization, Other)
  Sender: FDA-Public Use
  Company Number: ES-MERCK-0410ESP00036

PATIENT
  Age: 79 Year
  Sex: Male

DRUGS (6)
  1. VIOXX [Suspect]
     Indication: OSTEOARTHRITIS
     Route: 048
     Dates: start: 20000701, end: 20040101
  2. VIOXX [Suspect]
     Indication: SURGERY
     Route: 048
     Dates: start: 20000701, end: 20040101
  3. INSULIN, ISOPHANE [Concomitant]
     Route: 065
  4. ASPIRIN [Concomitant]
     Route: 065
  5. ENALAPRIL MALEATE [Concomitant]
     Route: 065
  6. NITROGLYCERIN [Concomitant]
     Route: 065

REACTIONS (4)
  - ACUTE MYOCARDIAL INFARCTION [None]
  - LOWER LIMB DEFORMITY [None]
  - MYOCARDIAL INFARCTION [None]
  - OSTEOMYELITIS [None]
